FAERS Safety Report 7903573-7 (Version None)
Quarter: 2011Q4

REPORT INFORMATION
  Report Type: 
  Country: None (occurrence: None)
  Receive Date: 20111109
  Receipt Date: 20111109
  Transmission Date: 20120403
  Serious: No
  Sender: FDA-Public Use
  Company Number: None

PATIENT
  Sex: Male

DRUGS (1)
  1. TESTOSTERONE CYPIONATE [Suspect]
     Dosage: 1 ML
     Route: 030
     Dates: start: 20111023, end: 20111108

REACTIONS (1)
  - PRODUCT DEPOSIT [None]
